FAERS Safety Report 5853017-4 (Version None)
Quarter: 2008Q3

REPORT INFORMATION
  Report Type: 
  Country: None (occurrence: None)
  Receive Date: 20080821
  Receipt Date: 20080820
  Transmission Date: 20090109
  Serious: Yes (Hospitalization)
  Sender: FDA-Public Use
  Company Number: US-BRISTOL-MYERS SQUIBB COMPANY-14308530

PATIENT

DRUGS (1)
  1. ORENCIA [Suspect]

REACTIONS (2)
  - MEDICATION ERROR [None]
  - SEPSIS [None]
